FAERS Safety Report 8136005-7 (Version None)
Quarter: 2012Q1

REPORT INFORMATION
  Report Type: 
  Country: None (occurrence: None)
  Receive Date: 20120209
  Receipt Date: 20120131
  Transmission Date: 20120608
  Serious: Yes (Death)
  Sender: FDA-Public Use
  Company Number: DSA_48820_2012

PATIENT
  Sex: Male

DRUGS (9)
  1. FLOMAX [Concomitant]
  2. CLONAZEPAM [Concomitant]
  3. DEPAKOTE [Concomitant]
  4. ZOCOR [Concomitant]
  5. CASODEX [Concomitant]
  6. THICK-IT [Concomitant]
  7. TRAZODONE HYDROCHLORIDE [Concomitant]
  8. 2-CAL DIET SUPPLEMENT [Concomitant]
  9. XENAZINE [Suspect]
     Indication: CHOREA
     Dosage: 25 MG BID ORAL
     Route: 048
     Dates: start: 20090403

REACTIONS (8)
  - DYSARTHRIA [None]
  - CLONUS [None]
  - MUSCLE SPASTICITY [None]
  - HYPERREFLEXIA [None]
  - TONGUE DISORDER [None]
  - BALANCE DISORDER [None]
  - HYPERTONIA [None]
  - SACCADIC EYE MOVEMENT [None]
